FAERS Safety Report 20631915 (Version 1)
Quarter: 2022Q1

REPORT INFORMATION
  Report Type: Report from Study
  Country: US (occurrence: US)
  Receive Date: 20220324
  Receipt Date: 20220324
  Transmission Date: 20220423
  Serious: Yes (Death, Other)
  Sender: FDA-Public Use
  Company Number: US-TEVA-2022-US-2018865

PATIENT
  Age: 23 Year
  Sex: Female

DRUGS (2)
  1. DOCETAXEL [Suspect]
     Active Substance: DOCETAXEL
     Indication: Osteosarcoma
     Route: 065
  2. GEMCITABINE [Suspect]
     Active Substance: GEMCITABINE
     Indication: Osteosarcoma
     Dosage: DAYS 1 AND 8 OF 21-DAY CYCLE
     Route: 065

REACTIONS (5)
  - Drug ineffective [Fatal]
  - Dacryostenosis acquired [Unknown]
  - Capillary leak syndrome [Unknown]
  - Alopecia [Unknown]
  - Oedema [Unknown]
